FAERS Safety Report 18021230 (Version 1)
Quarter: 2020Q3

REPORT INFORMATION
  Report Type: Report from Study
  Country: CM (occurrence: CM)
  Receive Date: 20200714
  Receipt Date: 20200714
  Transmission Date: 20201103
  Serious: Yes (Hospitalization, Other)
  Sender: FDA-Public Use
  Company Number: CM-GILEAD-2020-0481413

PATIENT
  Age: 62 Year
  Sex: Male
  Weight: 72 kg

DRUGS (5)
  1. METFORMIN [Concomitant]
     Active Substance: METFORMIN HYDROCHLORIDE
     Indication: DIABETES MELLITUS
  2. SINTROM [Concomitant]
     Active Substance: ACENOCOUMAROL
     Indication: PULMONARY EMBOLISM
  3. BICTEGRAVIR W/EMTRICITABINE/TENOFOVIR ALAFENAMIDE [Suspect]
     Active Substance: BICTEGRAVIR\EMTRICITABINE\TENOFOVIR ALAFENAMIDE
     Indication: HIV INFECTION
     Route: 065
  4. SINTROM [Concomitant]
     Active Substance: ACENOCOUMAROL
     Indication: PORTAL VEIN THROMBOSIS
  5. SINTROM [Concomitant]
     Active Substance: ACENOCOUMAROL
     Indication: DEEP VEIN THROMBOSIS

REACTIONS (2)
  - Pancreatitis acute [Unknown]
  - Rhabdomyolysis [Unknown]
